FAERS Safety Report 20768134 (Version 1)
Quarter: 2022Q2

REPORT INFORMATION
  Report Type: Spontaneous
  Country: US (occurrence: US)
  Receive Date: 20220429
  Receipt Date: 20220429
  Transmission Date: 20220721
  Serious: Yes (Other)
  Sender: FDA-Public Use
  Company Number: US-BAXTER-2022BAX009294

PATIENT
  Age: 67 Year
  Sex: Female

DRUGS (2)
  1. CEFTRIAXONE AND DEXTROSE [Suspect]
     Active Substance: CEFTRIAXONE SODIUM
     Indication: Antibiotic therapy
     Route: 065
  2. CEFEPIME [Suspect]
     Active Substance: CEFEPIME HYDROCHLORIDE
     Indication: Antibiotic therapy
     Route: 065

REACTIONS (2)
  - Acute generalised exanthematous pustulosis [Recovered/Resolved]
  - Neutrophilia [Recovered/Resolved]
